FAERS Safety Report 10063805 (Version 3)
Quarter: 2014Q2

REPORT INFORMATION
  Report Type: Spontaneous
  Country: GB (occurrence: GB)
  Receive Date: 20140408
  Receipt Date: 20140509
  Transmission Date: 20141212
  Serious: Yes (Other)
  Sender: FDA-Public Use
  Company Number: GB-BEH-2014041657

PATIENT
  Age: 26 Year
  Sex: Male

DRUGS (10)
  1. HIZENTRA [Suspect]
     Indication: HYPOGAMMAGLOBULINAEMIA
     Route: 058
     Dates: start: 20130802, end: 20130929
  2. FEXOFENADINE [Concomitant]
  3. LACOSAMIDE [Concomitant]
  4. CLINDAMYCIN [Concomitant]
  5. PARACETAMOL [Concomitant]
  6. OMEPRAZOLE [Concomitant]
  7. MIDAZOLAM [Concomitant]
  8. MOVICOL [Concomitant]
  9. NA VALPROATE [Concomitant]
  10. AZITHROMYCIN [Concomitant]

REACTIONS (4)
  - Infusion site ulcer [Recovered/Resolved]
  - Infusion site discolouration [Recovered/Resolved]
  - Ulcer [Recovered/Resolved]
  - Blister [Recovered/Resolved]
